FAERS Safety Report 6613295-0 (Version None)
Quarter: 2010Q1

REPORT INFORMATION
  Report Type: 
  Country: None (occurrence: None)
  Receive Date: 20100304
  Receipt Date: 20100219
  Transmission Date: 20100710
  Serious: Yes (Other)
  Sender: FDA-Public Use
  Company Number: PHHY2010AU09812

PATIENT
  Sex: Male

DRUGS (2)
  1. CLOZARIL [Suspect]
     Dosage: 100 MG, QD
     Dates: start: 20100115
  2. CLOZARIL [Suspect]
     Dosage: 200 MG, QD
     Dates: end: 20100203

REACTIONS (4)
  - CARDIAC DISORDER [None]
  - NEUTROPHIL COUNT INCREASED [None]
  - TROPONIN INCREASED [None]
  - WHITE BLOOD CELL COUNT INCREASED [None]
